FAERS Safety Report 14355902 (Version 14)
Quarter: 2020Q4

REPORT INFORMATION
  Report Type: Report from Study
  Country: CN (occurrence: CN)
  Receive Date: 20180105
  Receipt Date: 20201221
  Transmission Date: 20210113
  Serious: Yes (Hospitalization)
  Sender: FDA-Public Use
  Company Number: CN-EISAI MEDICAL RESEARCH-EC-2018-034755

PATIENT
  Age: 73 Year
  Sex: Male
  Weight: 59.8 kg

DRUGS (5)
  1. LENVATINIB [Suspect]
     Active Substance: LENVATINIB
     Route: 048
     Dates: start: 20180116, end: 20181218
  2. LENVATINIB [Suspect]
     Active Substance: LENVATINIB
     Route: 048
     Dates: start: 20200715
  3. LENVATINIB [Suspect]
     Active Substance: LENVATINIB
     Indication: THYROID CANCER
     Route: 048
     Dates: start: 20170925, end: 20171228
  4. LENVATINIB [Suspect]
     Active Substance: LENVATINIB
     Route: 048
     Dates: start: 20190114, end: 20190731
  5. LENVATINIB [Suspect]
     Active Substance: LENVATINIB
     Route: 048
     Dates: start: 20190809, end: 20200619

REACTIONS (3)
  - Angina unstable [Recovering/Resolving]
  - Gastritis [Recovered/Resolved]
  - Arteriosclerosis coronary artery [Not Recovered/Not Resolved]

NARRATIVE: CASE EVENT DATE: 20171226
